FAERS Safety Report 4658486-3 (Version None)
Quarter: 2005Q2

REPORT INFORMATION
  Report Type: 
  Country: None (occurrence: None)
  Receive Date: 20050511
  Receipt Date: 20050422
  Transmission Date: 20051028
  Serious: Yes (Other)
  Sender: FDA-Public Use
  Company Number: DE-GLAXOSMITHKLINE-D0046442A

PATIENT
  Age: 36 Year
  Sex: Female
  Weight: 64 kg

DRUGS (2)
  1. RELENZA [Suspect]
     Indication: INFLUENZA
     Dosage: 5MG FOUR TIMES PER DAY
     Route: 065
     Dates: start: 20050401, end: 20050405
  2. IRON [Concomitant]
     Route: 065

REACTIONS (6)
  - BONE MARROW DISORDER [None]
  - EXANTHEM [None]
  - HAEMOGLOBIN DECREASED [None]
  - HYPERSENSITIVITY [None]
  - JOINT SWELLING [None]
  - THROMBOCYTHAEMIA [None]
